FAERS Safety Report 15655842 (Version 5)
Quarter: 2019Q4

REPORT INFORMATION
  Report Type: Report from Study
  Country: JP (occurrence: JP)
  Receive Date: 20181126
  Receipt Date: 20191121
  Transmission Date: 20200122
  Serious: Yes (Life-Threatening, Hospitalization, Disabling)
  Sender: FDA-Public Use
  Company Number: JP-BIOGEN-2018BI00534492

PATIENT
  Age: 3 Year
  Sex: Male
  Weight: 11.7 kg

DRUGS (31)
  1. INCREMIN [Concomitant]
     Active Substance: FERRIC PYROPHOSPHATE
     Indication: ANAEMIA
     Dates: end: 201808
  2. ERYTHROCIN [Concomitant]
     Active Substance: ERYTHROMYCIN LACTOBIONATE
     Route: 048
  3. URSO [Concomitant]
     Active Substance: URSODIOL
     Indication: HEPATIC FUNCTION ABNORMAL
     Dates: end: 201801
  4. MIYA-BM [Concomitant]
     Active Substance: CLOSTRIDIUM BUTYRICUM SPORES STRAIN M-55
     Indication: DIARRHOEA
     Dates: end: 201805
  5. LIDOCAINE HYDROCHLORIDE. [Concomitant]
     Active Substance: LIDOCAINE HYDROCHLORIDE
     Route: 050
     Dates: start: 20171220, end: 20171220
  6. TRICLORYL [Concomitant]
     Active Substance: TRICLOFOS SODIUM
     Indication: INVESTIGATION
     Dates: start: 20180509, end: 20180509
  7. ERYTHROCIN W [Concomitant]
     Indication: RESPIRATORY DISORDER
  8. SPINRAZA [Suspect]
     Active Substance: NUSINERSEN
     Route: 050
     Dates: start: 20180425, end: 20180425
  9. ERYTHROCIN [Concomitant]
     Active Substance: ERYTHROMYCIN LACTOBIONATE
     Indication: RESPIRATORY DISORDER
  10. RAVONAL [Concomitant]
     Active Substance: THIOPENTAL
     Route: 050
     Dates: start: 20181127, end: 20181127
  11. SPINRAZA [Suspect]
     Active Substance: NUSINERSEN
     Route: 050
     Dates: start: 20171115, end: 20171115
  12. SPINRAZA [Suspect]
     Active Substance: NUSINERSEN
     Route: 050
     Dates: start: 20171220, end: 20171220
  13. SPINRAZA [Suspect]
     Active Substance: NUSINERSEN
     Route: 050
     Dates: start: 20180822, end: 20180822
  14. SEVOFLURANE. [Concomitant]
     Active Substance: SEVOFLURANE
     Route: 050
     Dates: start: 20171220, end: 20171220
  15. LIDOCAINE HYDROCHLORIDE. [Concomitant]
     Active Substance: LIDOCAINE HYDROCHLORIDE
     Indication: ANAESTHESIA PROCEDURE
     Route: 050
     Dates: start: 20171101, end: 20171101
  16. TRICLORYL [Concomitant]
     Active Substance: TRICLOFOS SODIUM
     Dates: start: 20180510, end: 20180510
  17. SEVOFLURANE. [Concomitant]
     Active Substance: SEVOFLURANE
     Route: 050
     Dates: start: 20180822, end: 20180822
  18. LIDOCAINE HYDROCHLORIDE. [Concomitant]
     Active Substance: LIDOCAINE HYDROCHLORIDE
     Route: 050
     Dates: start: 20171115, end: 20171115
  19. LIDOCAINE HYDROCHLORIDE. [Concomitant]
     Active Substance: LIDOCAINE HYDROCHLORIDE
     Route: 050
     Dates: start: 20180425, end: 20180425
  20. LIDOCAINE HYDROCHLORIDE. [Concomitant]
     Active Substance: LIDOCAINE HYDROCHLORIDE
     Route: 050
     Dates: start: 20180822, end: 20180822
  21. LIDOCAINE HYDROCHLORIDE. [Concomitant]
     Active Substance: LIDOCAINE HYDROCHLORIDE
     Indication: INVESTIGATION
     Route: 050
     Dates: start: 20181116, end: 20181116
  22. SPINRAZA [Suspect]
     Active Substance: NUSINERSEN
     Indication: SPINAL MUSCULAR ATROPHY
     Route: 050
     Dates: start: 20171018, end: 20171018
  23. MUCODYNE [Concomitant]
     Active Substance: CARBOCYSTEINE
     Indication: RESPIRATORY DISORDER
     Dates: end: 201805
  24. SEVOFLURANE. [Concomitant]
     Active Substance: SEVOFLURANE
     Route: 050
     Dates: start: 20171101, end: 20171101
  25. RAVONAL [Concomitant]
     Active Substance: THIOPENTAL
     Route: 050
     Dates: start: 20181205, end: 20181205
  26. SPINRAZA [Suspect]
     Active Substance: NUSINERSEN
     Route: 050
     Dates: start: 20171101, end: 20171101
  27. SEVOFLURANE. [Concomitant]
     Active Substance: SEVOFLURANE
     Route: 050
     Dates: start: 20180425, end: 20180425
  28. RAVONAL [Concomitant]
     Active Substance: THIOPENTAL
     Indication: INVESTIGATION
     Route: 050
     Dates: start: 20180509, end: 20180509
  29. RAVONAL [Concomitant]
     Active Substance: THIOPENTAL
     Route: 050
     Dates: start: 20180510, end: 20180510
  30. SEVOFLURANE. [Concomitant]
     Active Substance: SEVOFLURANE
     Indication: ANAESTHESIA PROCEDURE
     Route: 050
     Dates: start: 20171018, end: 20171018
  31. SEVOFLURANE. [Concomitant]
     Active Substance: SEVOFLURANE
     Route: 050
     Dates: start: 20171115, end: 20171115

REACTIONS (3)
  - Encephalopathy [Not Recovered/Not Resolved]
  - Back pain [Recovered/Resolved]
  - Tachycardia [Recovered/Resolved]

NARRATIVE: CASE EVENT DATE: 20171018
